FAERS Safety Report 9412658 (Version 1)
Quarter: 2013Q3

REPORT INFORMATION
  Report Type: Spontaneous
  Country: US (occurrence: US)
  Receive Date: 20130722
  Receipt Date: 20130722
  Transmission Date: 20140515
  Serious: Yes (Other)
  Sender: FDA-Public Use
  Company Number: US-CELGENEUS-163-50794-13071848

PATIENT
  Sex: 0

DRUGS (2)
  1. VIDAZA [Suspect]
     Indication: COLORECTAL CANCER METASTATIC
     Dosage: 40 MILLIGRAM/MILLILITERS
     Route: 058
  2. ENTINOSTAT [Suspect]
     Indication: COLORECTAL CANCER METASTATIC
     Dosage: 7 MILLIGRAM
     Route: 048

REACTIONS (11)
  - Hyperglycaemia [Unknown]
  - Urinary tract obstruction [Unknown]
  - Hypophosphataemia [Unknown]
  - Hypokalaemia [Unknown]
  - Anaemia [Unknown]
  - Lymphocyte count decreased [Unknown]
  - Fatigue [Unknown]
  - Nausea [Unknown]
  - Chest pain [Unknown]
  - Neutropenia [Unknown]
  - Leukopenia [Unknown]
